FAERS Safety Report 24217297 (Version 1)
Quarter: 2024Q3

REPORT INFORMATION
  Report Type: Spontaneous
  Country: US (occurrence: US)
  Receive Date: 20240816
  Receipt Date: 20240816
  Transmission Date: 20241017
  Serious: Yes (Disabling)
  Sender: ABBVIE
  Company Number: US-ABBVIE-5879200

PATIENT
  Sex: Male

DRUGS (1)
  1. UBROGEPANT [Suspect]
     Active Substance: UBROGEPANT
     Indication: Migraine
     Route: 048

REACTIONS (4)
  - Abdominal pain [Unknown]
  - Product physical issue [Unknown]
  - Blood immunoglobulin E increased [Unknown]
  - Poor quality product administered [Unknown]
